FAERS Safety Report 9055892 (Version 1)
Quarter: 2013Q1

REPORT INFORMATION
  Report Type: Spontaneous
  Country: US (occurrence: US)
  Receive Date: 20130206
  Receipt Date: 20130206
  Transmission Date: 20140127
  Serious: No
  Sender: FDA-Public Use
  Company Number: US-ALLERGAN-1201160US

PATIENT
  Age: 59 Year
  Sex: Female

DRUGS (2)
  1. RESTASIS? [Suspect]
     Indication: DRY EYE
     Dosage: 1 GTT, BID
     Dates: start: 20120125
  2. RESTASIS? [Suspect]
     Indication: LACRIMATION INCREASED

REACTIONS (1)
  - Eye irritation [Unknown]
